FAERS Safety Report 8836382 (Version 1)
Quarter: 2012Q4

REPORT INFORMATION
  Report Type: 
  Country: US (occurrence: US)
  Receive Date: 20121011
  Receipt Date: 20121011
  Transmission Date: 20130627
  Serious: No
  Sender: FDA-Public Use
  Company Number: US-NOVEN-12US005066

PATIENT
  Sex: Male

DRUGS (1)
  1. FENTANYL [Suspect]
     Indication: PAIN
     Dosage: 75 ug/hr, q 3days
     Route: 062

REACTIONS (5)
  - Drug withdrawal syndrome [Not Recovered/Not Resolved]
  - Flushing [Not Recovered/Not Resolved]
  - Sneezing [Not Recovered/Not Resolved]
  - Piloerection [None]
  - Product quality issue [Not Recovered/Not Resolved]
